FAERS Safety Report 6906241-3 (Version None)
Quarter: 2010Q3

REPORT INFORMATION
  Report Type: 
  Country: None (occurrence: None)
  Receive Date: 20100803
  Receipt Date: 20100803
  Transmission Date: 20110219
  Serious: Yes (Other)
  Sender: FDA-Public Use
  Company Number: None

PATIENT
  Age: 50 Year
  Sex: Female

DRUGS (1)
  1. EVAMIST [Suspect]
     Indication: HOT FLUSH
     Dosage: 2 SPRAYS DAILY AS DIRECTED
     Route: 045
     Dates: start: 20100517, end: 20100729

REACTIONS (3)
  - HOT FLUSH [None]
  - INCORRECT DOSE ADMINISTERED BY DEVICE [None]
  - PRODUCT PACKAGING ISSUE [None]
